FAERS Safety Report 14990783 (Version 1)
Quarter: 2018Q2

REPORT INFORMATION
  Report Type: Spontaneous
  Country: HR (occurrence: HR)
  Receive Date: 20180608
  Receipt Date: 20180608
  Transmission Date: 20180711
  Serious: Yes (Other)
  Sender: FDA-Public Use
  Company Number: HR-ASTRAZENECA-2018SE73133

PATIENT
  Age: 51 Year
  Sex: Male

DRUGS (4)
  1. NEBIVOLOL. [Concomitant]
     Active Substance: NEBIVOLOL
  2. EZETIMIBE. [Interacting]
     Active Substance: EZETIMIBE
  3. ROSUVASTATIN. [Suspect]
     Active Substance: ROSUVASTATIN
     Indication: DYSLIPIDAEMIA
     Route: 048
  4. ACETYLSALICYLIC ACID [Concomitant]
     Active Substance: ASPIRIN

REACTIONS (2)
  - Drug-induced liver injury [Unknown]
  - Drug interaction [Unknown]
